FAERS Safety Report 7047482-7 (Version None)
Quarter: 2010Q4

REPORT INFORMATION
  Report Type: 
  Country: None (occurrence: None)
  Receive Date: 20101015
  Receipt Date: 20101007
  Transmission Date: 20110411
  Serious: Yes (Other)
  Sender: FDA-Public Use
  Company Number: US-ABBOTT-10P-163-0677020-00

PATIENT
  Sex: Female
  Weight: 69.916 kg

DRUGS (2)
  1. SYNTHROID [Suspect]
     Indication: HYPOTHYROIDISM
     Route: 048
     Dates: start: 20000101
  2. SYNTHROID [Suspect]
     Route: 048

REACTIONS (4)
  - GLOSSODYNIA [None]
  - TEMPERATURE INTOLERANCE [None]
  - UTERINE HAEMORRHAGE [None]
  - UTERINE LEIOMYOMA [None]
